FAERS Safety Report 8327398-6 (Version None)
Quarter: 2012Q2

REPORT INFORMATION
  Report Type: 
  Country: None (occurrence: None)
  Receive Date: 20120502
  Receipt Date: 20120420
  Transmission Date: 20120825
  Serious: Yes (Hospitalization, Other)
  Sender: FDA-Public Use
  Company Number: PL-PAR PHARMACEUTICAL, INC-2012SCPR004309

PATIENT

DRUGS (11)
  1. CLARITHROMYCIN [Suspect]
     Indication: GASTROINTESTINAL INFLAMMATION
  2. IBUPROFEN [Suspect]
     Indication: GASTROINTESTINAL INFLAMMATION
  3. ACETAMINOPHEN [Suspect]
     Indication: LYMPHADENOPATHY
  4. MESALAMINE [Concomitant]
     Indication: COLITIS ULCERATIVE
     Dosage: UNK, UNKNOWN
     Route: 065
  5. ACETAMINOPHEN [Suspect]
     Indication: INFLUENZA LIKE ILLNESS
     Dosage: UNK, UNKNOWN
     Route: 065
  6. IBUPROFEN [Suspect]
     Indication: INFLUENZA LIKE ILLNESS
     Dosage: UNK, UNKNOWN
     Route: 065
  7. IBUPROFEN [Suspect]
     Indication: LYMPHADENOPATHY
  8. CLARITHROMYCIN [Suspect]
     Indication: LYMPHADENOPATHY
  9. CLARITHROMYCIN [Suspect]
     Indication: INFLUENZA LIKE ILLNESS
     Dosage: UNK, UNKNOWN
     Route: 065
  10. MESALAMINE [Concomitant]
     Indication: GASTROINTESTINAL HAEMORRHAGE
  11. ACETAMINOPHEN [Suspect]
     Indication: GASTROINTESTINAL INFLAMMATION

REACTIONS (7)
  - PNEUMONIA [None]
  - RENAL IMPAIRMENT [None]
  - ACUTE HEPATIC FAILURE [None]
  - PULMONARY OEDEMA [None]
  - TRANSFUSION-RELATED ACUTE LUNG INJURY [None]
  - RESPIRATORY FAILURE [None]
  - DERMATITIS EXFOLIATIVE [None]
